FAERS Safety Report 8286081-6 (Version None)
Quarter: 2012Q2

REPORT INFORMATION
  Report Type: 
  Country: None (occurrence: None)
  Receive Date: 20120416
  Receipt Date: 20120403
  Transmission Date: 20120825
  Serious: No
  Sender: FDA-Public Use
  Company Number: US-BIOGENIDEC-2012BI010883

PATIENT
  Age: 60 Year
  Sex: Male
  Weight: 72 kg

DRUGS (19)
  1. DETROL [Concomitant]
     Route: 048
  2. TYSABRI [Suspect]
     Indication: MULTIPLE SCLEROSIS
     Route: 042
     Dates: start: 20070420
  3. ARICEPT [Concomitant]
     Route: 048
  4. PROZAC [Concomitant]
     Route: 048
  5. MULTI-VITAMIN [Concomitant]
     Route: 048
  6. COLACE [Concomitant]
     Route: 048
  7. ENABLEX [Concomitant]
     Route: 048
  8. PROZAC [Concomitant]
     Route: 048
  9. ANUSOL HC [Concomitant]
     Route: 054
  10. VICODIN [Concomitant]
     Route: 048
  11. MACROBID [Concomitant]
     Route: 048
  12. MILK OF MAGNESIA TAB [Concomitant]
     Route: 048
  13. VESICARE [Concomitant]
     Route: 048
  14. CRANBERRY [Concomitant]
     Route: 048
  15. PSYLLIUM [Concomitant]
     Dosage: DOSE UNIT:0.52
     Route: 048
  16. SYMMETREL [Concomitant]
     Route: 048
  17. AMBIEN [Concomitant]
     Route: 048
  18. PRILOSEC [Concomitant]
     Route: 048
  19. PROTONIX [Concomitant]
     Route: 048

REACTIONS (4)
  - BACK PAIN [None]
  - VIRAL INFECTION [None]
  - URINARY TRACT INFECTION [None]
  - MULTIPLE SCLEROSIS [None]
